FAERS Safety Report 8963219 (Version 1)
Quarter: 2012Q4

REPORT INFORMATION
  Report Type: 
  Country: BE (occurrence: BE)
  Receive Date: 20121214
  Receipt Date: 20121214
  Transmission Date: 20130627
  Serious: Yes (Hospitalization)
  Sender: FDA-Public Use
  Company Number: BE-MPIJNJ-2012-08714

PATIENT

DRUGS (2)
  1. VELCADE [Suspect]
     Indication: BREAST CANCER METASTATIC
     Dosage: 1.3 mg/m2, UNK
     Route: 042
     Dates: start: 20050502, end: 20050602
  2. TRASTUZUMAB [Suspect]
     Indication: BREAST CANCER METASTATIC
     Dosage: 4 mg/kg, UNK
     Route: 042
     Dates: start: 20050523

REACTIONS (4)
  - Liver disorder [Recovered/Resolved]
  - Hepatotoxicity [Recovering/Resolving]
  - Metastases to liver [Not Recovered/Not Resolved]
  - Off label use [Unknown]
